FAERS Safety Report 10444306 (Version 1)
Quarter: 2014Q3

REPORT INFORMATION
  Report Type: Report from Study
  Country: DE (occurrence: DE)
  Receive Date: 20140910
  Receipt Date: 20140910
  Transmission Date: 20150326
  Serious: No
  Sender: FDA-Public Use
  Company Number: PHHY2014DE098476

PATIENT
  Sex: Male
  Weight: 107 kg

DRUGS (10)
  1. EUTHYROX [Concomitant]
     Active Substance: LEVOTHYROXINE SODIUM
     Dosage: UNK
     Dates: start: 20111129
  2. TASIGNA [Suspect]
     Active Substance: NILOTINIB
     Dosage: 800 MG, PER DAY
     Route: 048
     Dates: start: 20130305
  3. TASIGNA [Suspect]
     Active Substance: NILOTINIB
     Dosage: 800 MG, PER DAY
     Route: 048
     Dates: start: 20130808
  4. TASIGNA [Suspect]
     Active Substance: NILOTINIB
     Dosage: 800 MG, PER DAY
     Route: 048
     Dates: start: 20120111
  5. TASIGNA [Suspect]
     Active Substance: NILOTINIB
     Indication: CHRONIC MYELOID LEUKAEMIA
     Dosage: 800 MG, PER DAY
     Route: 048
     Dates: start: 20111215
  6. TASIGNA [Suspect]
     Active Substance: NILOTINIB
     Dosage: 600 MG, PER DAY
     Route: 048
     Dates: start: 20140218
  7. LASIX [Concomitant]
     Active Substance: FUROSEMIDE
     Dosage: UNK
     Dates: start: 20111129
  8. ALLOPURINOL. [Concomitant]
     Active Substance: ALLOPURINOL
     Dosage: UNK
     Dates: start: 20111129, end: 20130307
  9. TASIGNA [Suspect]
     Active Substance: NILOTINIB
     Dosage: 800 MG, PER DAY
     Route: 048
     Dates: start: 20120927
  10. TASIGNA [Suspect]
     Active Substance: NILOTINIB
     Dosage: 800 MG, PER DAY
     Route: 048
     Dates: start: 20120214

REACTIONS (2)
  - Muscular weakness [Recovered/Resolved]
  - Muscle spasms [Recovered/Resolved]

NARRATIVE: CASE EVENT DATE: 20120214
